FAERS Safety Report 25517514 (Version 2)
Quarter: 2025Q3

REPORT INFORMATION
  Report Type: Spontaneous
  Country: JP (occurrence: JP)
  Receive Date: 20250704
  Receipt Date: 20250811
  Transmission Date: 20251020
  Serious: Yes (Hospitalization)
  Sender: GLAXOSMITHKLINE
  Company Number: JP-GSKJP-JP2025JPN072321AA

PATIENT

DRUGS (5)
  1. DAPRODUSTAT [Suspect]
     Active Substance: DAPRODUSTAT
     Indication: Nephrogenic anaemia
  2. DAPRODUSTAT [Suspect]
     Active Substance: DAPRODUSTAT
  3. DAPRODUSTAT [Suspect]
     Active Substance: DAPRODUSTAT
  4. DAPRODUSTAT [Suspect]
     Active Substance: DAPRODUSTAT
  5. DARBEPOETIN ALFA [Concomitant]
     Active Substance: DARBEPOETIN ALFA
     Indication: Nephrogenic anaemia

REACTIONS (4)
  - Anaemia [Recovered/Resolved]
  - Haemoglobin decreased [Unknown]
  - Haemorrhage [Unknown]
  - Therapeutic response decreased [Unknown]
